FAERS Safety Report 19649302 (Version 1)
Quarter: 2021Q3

REPORT INFORMATION
  Report Type: Spontaneous
  Country: IT (occurrence: IT)
  Receive Date: 20210802
  Receipt Date: 20210802
  Transmission Date: 20211014
  Serious: Yes (Hospitalization, Other)
  Sender: FDA-Public Use
  Company Number: IT-GLAXOSMITHKLINE-ITCH2021GSK050291

PATIENT
  Age: 11 Year
  Sex: Male

DRUGS (3)
  1. CLARITHROMYCIN. [Suspect]
     Active Substance: CLARITHROMYCIN
     Indication: PRODUCT USED FOR UNKNOWN INDICATION
     Dosage: UNK
  2. AMOXICILLIN?CLAVULANIC ACID [Suspect]
     Active Substance: AMOXICILLIN\CLAVULANIC ACID
     Indication: PRODUCT USED FOR UNKNOWN INDICATION
     Dosage: UNK
  3. IBUPROFEN. [Suspect]
     Active Substance: IBUPROFEN
     Indication: PRODUCT USED FOR UNKNOWN INDICATION
     Dosage: UNK

REACTIONS (10)
  - Pyrexia [Recovered/Resolved]
  - Pneumonia [Recovered/Resolved]
  - Skin reaction [Recovered/Resolved]
  - Cough [Recovered/Resolved]
  - Conjunctivitis [Recovered/Resolved]
  - Stomatitis [Recovered/Resolved]
  - Oral mucosal blistering [Recovered/Resolved]
  - Dyspnoea [Recovered/Resolved]
  - Pneumonia mycoplasmal [Recovered/Resolved]
  - Mucocutaneous disorder [Recovered/Resolved]
